FAERS Safety Report 8178688-1 (Version None)
Quarter: 2012Q1

REPORT INFORMATION
  Report Type: 
  Country: None (occurrence: None)
  Receive Date: 20120301
  Receipt Date: 20120222
  Transmission Date: 20120608
  Serious: Yes (Hospitalization)
  Sender: FDA-Public Use
  Company Number: US-ASTRAZENECA-2011SE29268

PATIENT
  Age: 61 Year
  Sex: Female

DRUGS (1)
  1. SYMBICORT [Suspect]
     Route: 055

REACTIONS (5)
  - ASTHMA [None]
  - MALAISE [None]
  - CARDIAC FAILURE [None]
  - ASTHENIA [None]
  - DRUG DOSE OMISSION [None]
